FAERS Safety Report 17611192 (Version 2)
Quarter: 2020Q2

REPORT INFORMATION
  Report Type: Spontaneous
  Country: US (occurrence: US)
  Receive Date: 20200401
  Receipt Date: 20200513
  Transmission Date: 20200713
  Serious: No
  Sender: FDA-Public Use
  Company Number: US-SA-2020SA079517

PATIENT
  Age: 16 Year
  Sex: Female

DRUGS (1)
  1. CEREZYME [Suspect]
     Active Substance: IMIGLUCERASE
     Indication: GAUCHER^S DISEASE
     Dosage: 3200 MG, QOW
     Route: 042
     Dates: start: 20190328

REACTIONS (2)
  - Product dose omission [Unknown]
  - Pain [Unknown]

NARRATIVE: CASE EVENT DATE: 202003
